FAERS Safety Report 11882061 (Version 1)
Quarter: 2015Q4

REPORT INFORMATION
  Report Type: Spontaneous
  Country: US (occurrence: None)
  Receive Date: 20151230
  Receipt Date: 20151230
  Transmission Date: 20160305
  Serious: No
  Sender: FDA-Public Use
  Company Number: None

PATIENT
  Age: 78 Year
  Sex: Male
  Weight: 81.65 kg

DRUGS (11)
  1. GLIMEPRIDE (GENERIC FOR AMARYL [Suspect]
     Active Substance: GLIMEPIRIDE
     Indication: TYPE 2 DIABETES MELLITUS
     Route: 048
     Dates: start: 201510, end: 20151204
  2. ZAROXOL [Concomitant]
  3. POTASSIUM [Concomitant]
     Active Substance: POTASSIUM
  4. VITAMIN C [Concomitant]
     Active Substance: ASCORBIC ACID
  5. LASIX [Concomitant]
     Active Substance: FUROSEMIDE
  6. DILTIAZEM [Concomitant]
     Active Substance: DILTIAZEM
  7. ALDACTONE [Concomitant]
     Active Substance: SPIRONOLACTONE
  8. CHORMIUM PILCOLINATE [Concomitant]
  9. COUMADIN [Concomitant]
     Active Substance: WARFARIN SODIUM
  10. MAGNESIUM [Concomitant]
     Active Substance: MAGNESIUM
  11. SIMVASTIN [Concomitant]
     Active Substance: SIMVASTATIN

REACTIONS (2)
  - Pruritus [None]
  - Pain [None]

NARRATIVE: CASE EVENT DATE: 20151120
